FAERS Safety Report 9349304 (Version 1)
Quarter: 2013Q2

REPORT INFORMATION
  Report Type: Spontaneous
  Country: FR (occurrence: FR)
  Receive Date: 20130614
  Receipt Date: 20130614
  Transmission Date: 20140414
  Serious: Yes (Death, Hospitalization, Other)
  Sender: FDA-Public Use
  Company Number: FR-TEVA-411569ISR

PATIENT
  Age: 84 Year
  Sex: Female

DRUGS (1)
  1. FUROSEMIDE [Suspect]
     Dosage: 1 DF= 40 MG

REACTIONS (4)
  - Pulmonary embolism [Unknown]
  - Pulmonary oedema [Unknown]
  - Cardiac failure [Fatal]
  - Hallucination [Unknown]
